FAERS Safety Report 5209094-7 (Version None)
Quarter: 2007Q1

REPORT INFORMATION
  Report Type: 
  Country: None (occurrence: None)
  Receive Date: 20070111
  Receipt Date: 20070103
  Transmission Date: 20070707
  Serious: Yes (Hospitalization)
  Sender: FDA-Public Use
  Company Number: B0453130A

PATIENT
  Age: 44 Year
  Sex: Male

DRUGS (4)
  1. ZIAGEN [Suspect]
     Indication: ACQUIRED IMMUNODEFICIENCY SYNDROME
     Dosage: 300 MG/TWICE PER DAY
  2. LAMIVUDINE [Concomitant]
  3. STAVUDINE [Concomitant]
  4. NEVIRAPINE [Concomitant]

REACTIONS (8)
  - BLOOD POTASSIUM DECREASED [None]
  - DIZZINESS POSTURAL [None]
  - FANCONI SYNDROME [None]
  - HAEMOGLOBIN DECREASED [None]
  - METABOLIC ACIDOSIS [None]
  - MUSCLE SPASMS [None]
  - NEPHROGENIC DIABETES INSIPIDUS [None]
  - WEIGHT DECREASED [None]
